FAERS Safety Report 8860608 (Version 1)
Quarter: 2012Q4

REPORT INFORMATION
  Report Type: 
  Country: FR (occurrence: FR)
  Receive Date: 20121025
  Receipt Date: 20121025
  Transmission Date: 20130627
  Serious: Yes (Hospitalization)
  Sender: FDA-Public Use
  Company Number: FR-ABBOTT-12P-056-0996701-00

PATIENT
  Age: 32 Year
  Sex: Female

DRUGS (3)
  1. NORVIR [Suspect]
     Indication: HIV INFECTION
     Dates: start: 20120518, end: 20120521
  2. TRUVADA [Suspect]
     Indication: HIV INFECTION
     Dates: start: 20120518, end: 20120520
  3. PREZISTA [Suspect]
     Indication: HIV INFECTION
     Dates: start: 20120518, end: 20120521

REACTIONS (1)
  - Renal tubular disorder [Recovered/Resolved]
